FAERS Safety Report 4512578-8 (Version None)
Quarter: 2004Q4

REPORT INFORMATION
  Report Type: 
  Country: None (occurrence: None)
  Receive Date: 20041124
  Receipt Date: 20041114
  Transmission Date: 20050328
  Serious: Yes (Other)
  Sender: FDA-Public Use
  Company Number: A03200403841

PATIENT
  Age: 54 Year
  Sex: Male

DRUGS (4)
  1. ELOXATIN [Suspect]
     Indication: COLON CANCER
     Dosage: 130 MG/M2 OTHER - INTRAVENOUS NOS
     Route: 042
     Dates: start: 20041101, end: 20041101
  2. ELOXATIN [Suspect]
     Indication: METASTASES TO LIVER
     Dosage: 130 MG/M2 OTHER - INTRAVENOUS NOS
     Route: 042
     Dates: start: 20041101, end: 20041101
  3. LEUCOVORIN [Concomitant]
  4. FLUOROURACIL [Concomitant]

REACTIONS (1)
  - PORTAL HYPERTENSION [None]
